FAERS Safety Report 9556998 (Version 4)
Quarter: 2015Q3

REPORT INFORMATION
  Report Type: Report from Study
  Country: DE (occurrence: DE)
  Receive Date: 20130926
  Receipt Date: 20150819
  Transmission Date: 20151125
  Serious: Yes (Hospitalization)
  Sender: FDA-Public Use
  Company Number: CHPA2012DE020860

PATIENT

DRUGS (37)
  1. METHYLPREDNISOLONE. [Suspect]
     Active Substance: METHYLPREDNISOLONE
     Indication: PRIMARY PROGRESSIVE MULTIPLE SCLEROSIS
     Dosage: 1000 MG, UNK
     Route: 042
     Dates: start: 20120419, end: 20120419
  2. PLACEBO [Suspect]
     Active Substance: UNSPECIFIED INGREDIENT
     Indication: MULTIPLE SCLEROSIS
     Dosage: UNK, ONCE/SINGLE
     Route: 042
     Dates: start: 20120419, end: 20120419
  3. LEVODOPA [Concomitant]
     Active Substance: LEVODOPA
     Dosage: 200 MG, BID
     Route: 048
     Dates: start: 20120607, end: 20120712
  4. BACLOFEN. [Concomitant]
     Active Substance: BACLOFEN
     Dosage: 30 MG, UNK
     Dates: start: 20121130, end: 20130321
  5. TRIAMCINOLONE [Concomitant]
     Active Substance: TRIAMCINOLONE
     Dosage: 40 MG, UNK
     Dates: start: 20121128, end: 20121128
  6. URBASON                                 /GFR/ [Concomitant]
     Active Substance: METHYLPREDNISOLONE
     Indication: MULTIPLE SCLEROSIS
     Dosage: 1000 MG, UNK
     Dates: start: 20120302, end: 20120306
  7. URBASON                                 /GFR/ [Concomitant]
     Active Substance: METHYLPREDNISOLONE
     Dosage: 1000 MG, UNK
     Dates: start: 20130219, end: 20130221
  8. METHYLPREDNISOLONE. [Suspect]
     Active Substance: METHYLPREDNISOLONE
     Dosage: 1000 MG, UNK
     Route: 065
     Dates: start: 20120302, end: 20120306
  9. IBUPROFEN. [Concomitant]
     Active Substance: IBUPROFEN
     Dosage: 600 MG, QD
     Route: 048
     Dates: start: 20120429, end: 20120429
  10. RANITIC [Concomitant]
     Active Substance: RANITIDINE HYDROCHLORIDE
     Dosage: 50 MG, UNK
     Route: 042
     Dates: start: 20120503
  11. AMITRIPTYLINE [Concomitant]
     Active Substance: AMITRIPTYLINE
     Indication: HEADACHE
     Dosage: 50 MG, UNK
     Dates: start: 20120306
  12. BENSERAZIDE [Concomitant]
     Active Substance: BENSERAZIDE
     Dosage: 100 MG, UNK
     Route: 048
     Dates: start: 20120713, end: 20120901
  13. LEVODOPA [Concomitant]
     Active Substance: LEVODOPA
     Dosage: 200 MG, UNK
     Dates: start: 20120713
  14. PREGABALIN. [Concomitant]
     Active Substance: PREGABALIN
     Indication: RESTLESS LEGS SYNDROME
     Dosage: 50 MG, UNK
     Dates: start: 20120904, end: 20121019
  15. PREGABALIN. [Concomitant]
     Active Substance: PREGABALIN
     Indication: MULTIPLE SCLEROSIS
     Dosage: 200 MG, UNK
     Dates: start: 20121019, end: 20121129
  16. BENSERAZIDE [Concomitant]
     Active Substance: BENSERAZIDE
     Indication: RESTLESS LEGS SYNDROME
     Dosage: 75 MG, UNK
     Route: 048
     Dates: start: 20121104
  17. IBUPROFEN. [Concomitant]
     Active Substance: IBUPROFEN
     Indication: HEADACHE
     Dosage: 400 MG, UNK
     Route: 048
     Dates: start: 20130116
  18. PARACETAMOL [Concomitant]
     Active Substance: ACETAMINOPHEN
     Dosage: 1000 MG, UNK
     Route: 042
     Dates: start: 20120503
  19. TRIAMCINOLONE [Concomitant]
     Active Substance: TRIAMCINOLONE
     Indication: MULTIPLE SCLEROSIS
     Dosage: 40 MG, UNK
     Dates: start: 20130115, end: 20130115
  20. URBASON                                 /GFR/ [Concomitant]
     Active Substance: METHYLPREDNISOLONE
     Dosage: 1000 MG, UNK
     Route: 065
     Dates: start: 20120419, end: 20120419
  21. FENISTIL [Suspect]
     Active Substance: DIMETHINDENE
     Dosage: UNK
     Route: 042
     Dates: start: 20120503
  22. LEVODOPA [Concomitant]
     Active Substance: LEVODOPA
     Dosage: 600 MG, UNK
     Dates: start: 20120902, end: 20121103
  23. ZOLMITRIPTAN. [Concomitant]
     Active Substance: ZOLMITRIPTAN
     Indication: HEADACHE
     Dosage: 5 MG, UNK
     Route: 048
     Dates: start: 20120503, end: 20120503
  24. BENSERAZIDE [Concomitant]
     Active Substance: BENSERAZIDE
     Dosage: 150 MG, UNK
     Route: 048
     Dates: start: 20120902, end: 20121130
  25. BENSERAZIDE [Concomitant]
     Active Substance: BENSERAZIDE
     Dosage: 50 MG, BID
     Route: 048
     Dates: start: 20120607, end: 20120712
  26. LEVODOPA [Concomitant]
     Active Substance: LEVODOPA
     Indication: RESTLESS LEGS SYNDROME
     Dosage: 300 MG, UNK
     Dates: start: 20121104
  27. PARACETAMOL [Concomitant]
     Active Substance: ACETAMINOPHEN
     Dosage: 1000 MG, UNK
     Route: 042
     Dates: start: 20120419
  28. BACLOFEN. [Concomitant]
     Active Substance: BACLOFEN
     Indication: MULTIPLE SCLEROSIS
     Dosage: 5 MG, UNK
     Dates: start: 20120902, end: 20121018
  29. URBASON                                 /GFR/ [Concomitant]
     Active Substance: METHYLPREDNISOLONE
     Dosage: 1000 MG, UNK
     Route: 065
     Dates: start: 20120503, end: 20120503
  30. METHYLPREDNISOLONE. [Suspect]
     Active Substance: METHYLPREDNISOLONE
     Dosage: 1000 MG, QD
     Route: 042
     Dates: start: 20120503, end: 20120503
  31. PLACEBO [Suspect]
     Active Substance: UNSPECIFIED INGREDIENT
     Dosage: UNK, ONCE/SINGLE
     Route: 042
     Dates: start: 20120503, end: 20120503
  32. BACLOFEN. [Concomitant]
     Active Substance: BACLOFEN
     Dosage: 15 MG, UNK
     Dates: start: 20121019, end: 20121129
  33. FENISTIL [Suspect]
     Active Substance: DIMETHINDENE
     Indication: PRIMARY PROGRESSIVE MULTIPLE SCLEROSIS
     Dosage: 4 MG, UNK
     Route: 042
     Dates: start: 20120419
  34. METHYLPREDNISOLONE. [Suspect]
     Active Substance: METHYLPREDNISOLONE
     Dosage: 1000 MG, QD
     Route: 042
     Dates: start: 20130219, end: 20130221
  35. RANITIC [Concomitant]
     Active Substance: RANITIDINE HYDROCHLORIDE
     Dosage: 50 MG, UNK
     Route: 042
     Dates: start: 20120419
  36. PREGABALIN. [Concomitant]
     Active Substance: PREGABALIN
     Dosage: 250 MG, UNK
     Dates: start: 20121130, end: 20130321
  37. TRIAMCINOLONE [Concomitant]
     Active Substance: TRIAMCINOLONE
     Dosage: 40 MG, UNK
     Dates: start: 20121016, end: 20121016

REACTIONS (1)
  - Dyspnoea [Recovered/Resolved with Sequelae]

NARRATIVE: CASE EVENT DATE: 20120802
